FAERS Safety Report 21208404 (Version 1)
Quarter: 2022Q3

REPORT INFORMATION
  Report Type: Report from Study
  Country: US (occurrence: US)
  Receive Date: 20220812
  Receipt Date: 20220812
  Transmission Date: 20221027
  Serious: No
  Sender: FDA-Public Use
  Company Number: US-KYOWAKIRIN-2022BKK012711

PATIENT

DRUGS (1)
  1. CRYSVITA [Suspect]
     Active Substance: BUROSUMAB-TWZA
     Indication: Hereditary hypophosphataemic rickets
     Dosage: ONCE EVERY 14 DAYS
     Route: 065

REACTIONS (2)
  - Tooth abscess [Unknown]
  - Intentional dose omission [Unknown]
